FAERS Safety Report 5345814-9 (Version None)
Quarter: 2007Q2

REPORT INFORMATION
  Report Type: 
  Country: None (occurrence: None)
  Receive Date: 20070426
  Receipt Date: 20060915
  Transmission Date: 20071010
  Serious: Yes (Hospitalization, Other)
  Sender: FDA-Public Use
  Company Number: US-JNJFOC-20060904347

PATIENT
  Age: 25 Year
  Sex: Male
  Weight: 81.6475 kg

DRUGS (7)
  1. ULTRAM [Suspect]
     Indication: BACK PAIN
     Dosage: SEE IMAGE
     Route: 048
     Dates: start: 20040201, end: 20040411
  2. ULTRAM [Suspect]
     Indication: HYPERTENSION
     Dosage: SEE IMAGE
     Route: 048
     Dates: start: 20040201, end: 20040411
  3. ULTRAM [Suspect]
     Indication: MIGRAINE
     Dosage: SEE IMAGE
     Route: 048
     Dates: start: 20040201, end: 20040411
  4. ULTRAM [Suspect]
     Indication: BACK PAIN
     Dosage: SEE IMAGE
     Route: 048
     Dates: start: 20040101
  5. ULTRAM [Suspect]
     Indication: HYPERTENSION
     Dosage: SEE IMAGE
     Route: 048
     Dates: start: 20040101
  6. ULTRAM [Suspect]
     Indication: MIGRAINE
     Dosage: SEE IMAGE
     Route: 048
     Dates: start: 20040101
  7. ATENOLOL [Concomitant]

REACTIONS (2)
  - CONVULSION [None]
  - MIGRAINE [None]
